FAERS Safety Report 23324625 (Version 3)
Quarter: 2024Q1

REPORT INFORMATION
  Report Type: Spontaneous
  Country: US (occurrence: US)
  Receive Date: 20231221
  Receipt Date: 20240110
  Transmission Date: 20240409
  Serious: Yes (Other)
  Sender: FDA-Public Use
  Company Number: US-BAXTER-2023BAX038389

PATIENT
  Age: 80 Year
  Sex: Female

DRUGS (2)
  1. LACTATED RINGERS SOLUTION [Suspect]
     Active Substance: CALCIUM CHLORIDE\POTASSIUM CHLORIDE\SODIUM CHLORIDE\SODIUM LACTATE
     Dosage: AT AN UNSPECIFIED DOSE AND FREQUENCY (IV BAGS)
     Route: 065
     Dates: start: 20231213
  2. SODIUM CHLORIDE [Suspect]
     Active Substance: SODIUM CHLORIDE
     Dosage: AT AN UNSPECIFIED DOSE AND FREQUENCY (IV BAG)
     Route: 065
     Dates: start: 20231213

REACTIONS (3)
  - Blindness [Recovered/Resolved]
  - Eye pain [Recovering/Resolving]
  - Product primary packaging issue [Unknown]

NARRATIVE: CASE EVENT DATE: 20231214
